FAERS Safety Report 7899846-7 (Version None)
Quarter: 2011Q4

REPORT INFORMATION
  Report Type: 
  Country: None (occurrence: None)
  Receive Date: 20111107
  Receipt Date: 20110922
  Transmission Date: 20120403
  Serious: No
  Sender: FDA-Public Use
  Company Number: US-AMGEN-USASP2011046345

PATIENT
  Age: 52 Year
  Sex: Female
  Weight: 80.272 kg

DRUGS (22)
  1. VYVANSE [Concomitant]
  2. LEFLUNOMIDE [Concomitant]
     Dosage: 20 MG, QD
     Route: 048
  3. DICLOFENAC SODIUM [Concomitant]
     Dosage: 75 MG, BID
     Route: 048
  4. KLONOPIN [Concomitant]
     Dosage: 1 MG, TID
     Route: 048
  5. PROCHLORPERAZINE [Concomitant]
     Dosage: 10 MG, UNK
  6. FOLIC ACID [Concomitant]
     Dosage: 1 MG, QD
     Route: 048
  7. BACLOFEN [Concomitant]
     Dosage: 20 MG, UNK
  8. METHOTREXATE [Concomitant]
     Dosage: 2.5 MG, 6 TIMES/WK
     Route: 048
  9. FUROSEMIDE [Concomitant]
  10. FENTANYL [Concomitant]
  11. BUMEX [Concomitant]
     Dosage: UNK UNK, BID
  12. ENBREL [Suspect]
     Indication: RHEUMATOID ARTHRITIS
     Dosage: 50 MG, QWK
     Route: 058
     Dates: start: 20110729
  13. METHADONE HCL [Concomitant]
     Dosage: 10 MG, TID
     Route: 048
  14. CYTOTEC [Concomitant]
     Dosage: UNK UNK, BID
     Route: 048
  15. OXYCODONE HCL [Concomitant]
  16. AMBIEN CR [Concomitant]
     Dosage: 12.5 MG, UNK
  17. CHANTIX [Concomitant]
  18. GABAPENTIN [Concomitant]
     Dosage: 600 MG, TID
     Route: 048
  19. MORPHINE SULFATE [Concomitant]
  20. DIAZEPAM [Concomitant]
     Dosage: 5 MG, Q8H
  21. ALPRAZOLAM [Concomitant]
  22. EPIPEN [Concomitant]
     Dosage: 0.3 MG, UNK

REACTIONS (5)
  - INFLUENZA LIKE ILLNESS [None]
  - DRUG INEFFECTIVE [None]
  - FATIGUE [None]
  - SOMNOLENCE [None]
  - MYALGIA [None]
